FAERS Safety Report 23574075 (Version 2)
Quarter: 2024Q1

REPORT INFORMATION
  Report Type: Spontaneous
  Country: FR (occurrence: FR)
  Receive Date: 20240228
  Receipt Date: 20240305
  Transmission Date: 20240410
  Serious: Yes (Hospitalization, Other)
  Sender: FDA-Public Use
  Company Number: FR-SANOFI-01950538

PATIENT
  Age: 75 Year
  Sex: Female

DRUGS (16)
  1. CORTIZONE 10 ANTI-ITCH FOR DIABETICS SKIN [Suspect]
     Active Substance: HYDROCORTISONE
     Indication: Transplant recipient
     Dosage: 4 DF, QD, TABLET
     Route: 065
     Dates: start: 20240108
  2. CORTIZONE 10 ANTI-ITCH FOR DIABETICS SKIN [Suspect]
     Active Substance: HYDROCORTISONE
     Dosage: 2 DF, TABLET
     Dates: start: 20240120
  3. CORTIZONE 10 ANTI-ITCH FOR DIABETICS SKIN [Suspect]
     Active Substance: HYDROCORTISONE
     Dosage: 1 DF, TABLET
     Dates: start: 20240121
  4. CORTIZONE 10 ANTI-ITCH FOR DIABETICS SKIN [Suspect]
     Active Substance: HYDROCORTISONE
  5. NEORAL [Concomitant]
     Active Substance: CYCLOSPORINE
     Indication: Product used for unknown indication
     Dosage: 2 DF, QD
  6. KARDEGIC [Concomitant]
     Active Substance: ASPIRIN DL-LYSINE
     Indication: Product used for unknown indication
     Dosage: 1 DF, QD
  7. FLUOXETINE [Concomitant]
     Active Substance: FLUOXETINE HYDROCHLORIDE
     Indication: Product used for unknown indication
     Dosage: 3 DF, QD
  8. CINACALCET HYDROCHLORIDE [Concomitant]
     Active Substance: CINACALCET HYDROCHLORIDE
     Indication: Product used for unknown indication
     Dosage: 1 DF, QD
  9. BISOPROLOL [Concomitant]
     Active Substance: BISOPROLOL\BISOPROLOL FUMARATE
     Dosage: 1 DF, QD
  10. ELIQUIS [Concomitant]
     Active Substance: APIXABAN
     Indication: Product used for unknown indication
     Dosage: 2 DF, QD
  11. FLECAINIDE [Concomitant]
     Active Substance: FLECAINIDE
     Indication: Product used for unknown indication
     Dosage: 100 MG, QD
  12. LIPTRUZET [Concomitant]
     Active Substance: ATORVASTATIN CALCIUM\EZETIMIBE
     Indication: Product used for unknown indication
     Dosage: 10 MG, QD
  13. CYANOCOBALAMIN [Concomitant]
     Active Substance: CYANOCOBALAMIN
     Indication: Product used for unknown indication
     Dosage: 1 DF, QW
  14. MIRTAZAPINE [Concomitant]
     Active Substance: MIRTAZAPINE
     Indication: Product used for unknown indication
     Dosage: 1 DF, QD
  15. ALPRAZOLAM [Concomitant]
     Active Substance: ALPRAZOLAM
     Indication: Product used for unknown indication
     Dosage: 2 DF, QD
  16. FOLIC ACID [Concomitant]
     Active Substance: FOLIC ACID
     Indication: Product used for unknown indication
     Dosage: 1 DF, QW

REACTIONS (19)
  - Malaise [Recovering/Resolving]
  - Fall [Recovering/Resolving]
  - Mobility decreased [Recovering/Resolving]
  - Musculoskeletal stiffness [Recovering/Resolving]
  - Condition aggravated [Recovering/Resolving]
  - Decreased appetite [Recovering/Resolving]
  - Gait disturbance [Recovering/Resolving]
  - Diabetes mellitus inadequate control [Not Recovered/Not Resolved]
  - Hyperglycaemia [Not Recovered/Not Resolved]
  - Mastication disorder [Recovering/Resolving]
  - Oral disorder [Recovering/Resolving]
  - Mood altered [Recovering/Resolving]
  - Sleep disorder [Recovering/Resolving]
  - Swelling face [Recovering/Resolving]
  - Cough [Recovering/Resolving]
  - Pneumonia [Recovering/Resolving]
  - Visual impairment [Recovering/Resolving]
  - Vision blurred [Recovering/Resolving]
  - General physical health deterioration [Unknown]

NARRATIVE: CASE EVENT DATE: 20240118
